FAERS Safety Report 23145654 (Version 2)
Quarter: 2023Q4

REPORT INFORMATION
  Report Type: Report from Study
  Country: US (occurrence: US)
  Receive Date: 20231103
  Receipt Date: 20231129
  Transmission Date: 20240109
  Serious: Yes (Hospitalization)
  Sender: FDA-Public Use
  Company Number: US-HORIZON THERAPEUTICS-HZN-2023-008394

PATIENT

DRUGS (2)
  1. KRYSTEXXA [Suspect]
     Active Substance: PEGLOTICASE
     Indication: Product used for unknown indication
     Dosage: UNK
     Route: 065
     Dates: start: 20230109
  2. MYCOPHENOLATE MOFETIL [Suspect]
     Active Substance: MYCOPHENOLATE MOFETIL
     Indication: Product used for unknown indication
     Dosage: UNK

REACTIONS (7)
  - Blood pressure decreased [Recovered/Resolved]
  - Blood electrolytes abnormal [Recovered/Resolved]
  - Blood calcium decreased [Unknown]
  - Blood magnesium decreased [Unknown]
  - Lethargy [Unknown]
  - Muscular weakness [Unknown]
  - Off label use [Unknown]
